FAERS Safety Report 9120939 (Version 2)
Quarter: 2013Q1

REPORT INFORMATION
  Report Type: Spontaneous
  Country: JP (occurrence: JP)
  Receive Date: 20130226
  Receipt Date: 20130306
  Transmission Date: 20140127
  Serious: Yes (Hospitalization)
  Sender: FDA-Public Use
  Company Number: JP-GLAXOSMITHKLINE-B0869859A

PATIENT
  Age: 68 Year
  Sex: Male

DRUGS (3)
  1. LAMICTAL [Suspect]
     Indication: BIPOLAR II DISORDER
     Dosage: 25MG ALTERNATE DAYS
     Route: 048
     Dates: start: 20120606, end: 20120619
  2. LAMICTAL [Suspect]
     Indication: BIPOLAR II DISORDER
     Dosage: 50MG ALTERNATE DAYS
     Route: 048
     Dates: start: 20120620, end: 20120706
  3. LAMICTAL [Suspect]
     Indication: BIPOLAR II DISORDER
     Dosage: 75MG ALTERNATE DAYS
     Route: 048
     Dates: start: 20120707, end: 20120714

REACTIONS (5)
  - Rash generalised [Recovering/Resolving]
  - Rash [Recovering/Resolving]
  - Erythema multiforme [Recovering/Resolving]
  - Erythema of eyelid [Recovering/Resolving]
  - Conjunctival hyperaemia [Recovering/Resolving]
